FAERS Safety Report 19591635 (Version 5)
Quarter: 2021Q4

REPORT INFORMATION
  Report Type: Report from Study
  Country: US (occurrence: US)
  Receive Date: 20210721
  Receipt Date: 20211008
  Transmission Date: 20220303
  Serious: No
  Sender: FDA-Public Use
  Company Number: NVSC2021US165174

PATIENT
  Age: 64 Year
  Sex: Male

DRUGS (3)
  1. ENTRESTO [Suspect]
     Active Substance: SACUBITRIL\VALSARTAN
     Indication: Product used for unknown indication
     Dosage: UNK, BID
     Route: 048
     Dates: start: 20210717
  2. CARVEDILOL [Suspect]
     Active Substance: CARVEDILOL
     Indication: Product used for unknown indication
     Dosage: UNK
     Route: 065
  3. POVIDONE [Concomitant]
     Active Substance: POVIDONE
     Indication: Sleep disorder
     Dosage: UNK
     Route: 065

REACTIONS (4)
  - Cardiomegaly [Unknown]
  - Weight decreased [Unknown]
  - Cough [Unknown]
  - Hypersensitivity [Unknown]
